FAERS Safety Report 11074065 (Version 1)
Quarter: 2015Q2

REPORT INFORMATION
  Report Type: Spontaneous
  Country: US (occurrence: US)
  Receive Date: 20150429
  Receipt Date: 20150429
  Transmission Date: 20150821
  Serious: No
  Sender: FDA-Public Use
  Company Number: US-009507513-1504USA022776

PATIENT
  Sex: Male

DRUGS (2)
  1. ZONTIVITY [Suspect]
     Active Substance: VORAPAXAR SULFATE
     Indication: CARDIAC REHABILITATION THERAPY
  2. ZONTIVITY [Suspect]
     Active Substance: VORAPAXAR SULFATE
     Indication: MYOCARDIAL INFARCTION
     Dosage: UNK
     Route: 048
     Dates: start: 201503, end: 2015

REACTIONS (1)
  - Drug intolerance [Unknown]

NARRATIVE: CASE EVENT DATE: 20150325
